FAERS Safety Report 9753545 (Version 2)
Quarter: 2014Q1

REPORT INFORMATION
  Report Type: Spontaneous
  Country: DE (occurrence: DE)
  Receive Date: 20131213
  Receipt Date: 20140225
  Transmission Date: 20141002
  Serious: Yes (Hospitalization, Other)
  Sender: FDA-Public Use
  Company Number: DE-PFIZER INC-2013354955

PATIENT
  Age: 65 Year
  Sex: Male

DRUGS (8)
  1. MORPHINE SULFATE [Suspect]
     Indication: PAIN
     Dosage: 5.5 MG, DAILY
     Route: 037
     Dates: start: 2006, end: 20130326
  2. MORPHINE SULFATE [Suspect]
     Dosage: 10 MG, DAILY
     Route: 037
     Dates: start: 20130326
  3. ARIXTRA [Concomitant]
     Dosage: UNK
  4. BENURON [Concomitant]
     Dosage: UNK
  5. OMEPRAZOL [Concomitant]
     Dosage: UNK
  6. GINGIUM [Concomitant]
     Dosage: UNK
  7. TOREM [Concomitant]
     Dosage: UNK
  8. SEVREDOL [Concomitant]
     Dosage: UNK

REACTIONS (9)
  - Overdose [Unknown]
  - Drug withdrawal syndrome [Unknown]
  - Device infusion issue [Unknown]
  - Wrong technique in drug usage process [Unknown]
  - Memory impairment [Unknown]
  - Abdominal discomfort [Unknown]
  - Restlessness [Unknown]
  - Nausea [Unknown]
  - Device connection issue [Unknown]
